APPROVED DRUG PRODUCT: BENZONATATE
Active Ingredient: BENZONATATE
Strength: 200MG
Dosage Form/Route: CAPSULE;ORAL
Application: A040587 | Product #002
Applicant: SUN PHARMACEUTICAL INDUSTRIES INC
Approved: Mar 19, 2008 | RLD: No | RS: No | Type: DISCN